FAERS Safety Report 18023826 (Version 1)
Quarter: 2020Q3

REPORT INFORMATION
  Report Type: Spontaneous
  Country: US (occurrence: US)
  Receive Date: 20200715
  Receipt Date: 20200715
  Transmission Date: 20201103
  Serious: Yes (Other)
  Sender: FDA-Public Use
  Company Number: US-SA-2020SA180644

PATIENT

DRUGS (3)
  1. PREDNISONE. [Concomitant]
     Active Substance: PREDNISONE
     Indication: EAR DISCOMFORT
     Dosage: 5 MG, QD
  2. DUPIXENT [Suspect]
     Active Substance: DUPILUMAB
     Indication: ASTHMA
     Dosage: 300 MG, QOW
     Dates: start: 20190515, end: 20191204
  3. PREDNISONE. [Concomitant]
     Active Substance: PREDNISONE
     Indication: EAR PAIN

REACTIONS (11)
  - Deafness unilateral [Not Recovered/Not Resolved]
  - Paranasal sinus discomfort [Recovered/Resolved]
  - Sinus pain [Recovered/Resolved]
  - Tinnitus [Not Recovered/Not Resolved]
  - Tympanic membrane disorder [Unknown]
  - Ear discomfort [Not Recovered/Not Resolved]
  - Nasal congestion [Unknown]
  - Tympanic membrane hyperaemia [Unknown]
  - Condition aggravated [Unknown]
  - Condition aggravated [Not Recovered/Not Resolved]
  - Ear pain [Unknown]

NARRATIVE: CASE EVENT DATE: 2019
